FAERS Safety Report 4630426-2 (Version None)
Quarter: 2005Q2

REPORT INFORMATION
  Report Type: 
  Country: None (occurrence: None)
  Receive Date: 20050408
  Receipt Date: 20050329
  Transmission Date: 20051028
  Serious: Yes (Life-Threatening, Hospitalization, Disabling)
  Sender: FDA-Public Use
  Company Number: GB-BRISTOL-MYERS SQUIBB COMPANY-12913570

PATIENT
  Age: 7 Decade
  Sex: Female

DRUGS (10)
  1. PACLITAXEL [Suspect]
     Indication: BLADDER CANCER
     Route: 042
     Dates: start: 20031014, end: 20031204
  2. CISPLATIN [Suspect]
     Indication: BLADDER CANCER
     Route: 042
     Dates: start: 20031014, end: 20031126
  3. GEMCITABINE [Suspect]
     Indication: BLADDER CANCER
     Route: 042
     Dates: start: 20031014, end: 20031204
  4. NITROFURANTOIN [Concomitant]
     Indication: URINARY TRACT INFECTION
     Route: 048
     Dates: start: 20031211, end: 20040222
  5. LEVOMEPROMAZINE [Concomitant]
     Indication: NAUSEA
     Route: 048
     Dates: start: 20031218, end: 20031222
  6. LEVOMEPROMAZINE [Concomitant]
     Indication: VOMITING
     Route: 048
     Dates: start: 20031218, end: 20031222
  7. METOCLOPRAMIDE [Concomitant]
     Indication: NAUSEA
     Route: 048
     Dates: start: 20031022, end: 20031029
  8. METOCLOPRAMIDE [Concomitant]
     Indication: VOMITING
     Route: 048
     Dates: start: 20031022, end: 20031029
  9. TRIMETHOPRIM [Concomitant]
     Indication: URINARY TRACT INFECTION
     Route: 048
     Dates: start: 20031022, end: 20031029
  10. CIPROFLOXACIN [Concomitant]
     Indication: URINARY TRACT INFECTION
     Route: 048
     Dates: start: 20031029, end: 20031102

REACTIONS (1)
  - PULMONARY FIBROSIS [None]
